FAERS Safety Report 6286671-6 (Version None)
Quarter: 2009Q3

REPORT INFORMATION
  Report Type: 
  Country: None (occurrence: None)
  Receive Date: 20090728
  Receipt Date: 20090721
  Transmission Date: 20100115
  Serious: Yes (Death, Hospitalization, Other)
  Sender: FDA-Public Use
  Company Number: PHHY2009GB21942

PATIENT
  Sex: Female

DRUGS (11)
  1. DICLOFENAC [Suspect]
     Indication: ARTHRALGIA
     Dosage: 2 DF, UNK
     Route: 048
     Dates: start: 20090511
  2. NITROGLYCERIN [Suspect]
     Indication: ANGINA PECTORIS
  3. ALBUTEROL [Concomitant]
     Dosage: 2 DF, PRN
  4. RAMIPRIL [Concomitant]
     Dosage: 2.5 MG/DAY
     Route: 048
  5. ACETAMINOPHEN [Concomitant]
  6. AMLODIPINE [Concomitant]
  7. ATORVASTATIN [Concomitant]
     Dosage: 40 MG/DAY
     Route: 048
  8. LANSOPRAZOLE [Concomitant]
     Dosage: 30 MG/DAY
     Route: 048
  9. SERETIDE [Concomitant]
     Dosage: 2 PUFFS PID
  10. ASPIRIN [Concomitant]
     Dosage: 75 MG/DAY
     Route: 048
  11. BUMETANIDE [Concomitant]
     Dosage: 1 MG, UNK
     Route: 048

REACTIONS (34)
  - ABDOMINAL PAIN [None]
  - ALANINE AMINOTRANSFERASE INCREASED [None]
  - ANAPHYLACTIC REACTION [None]
  - BLOOD ALBUMIN DECREASED [None]
  - BLOOD CALCIUM DECREASED [None]
  - BLOOD CREATININE INCREASED [None]
  - BLOOD PHOSPHORUS INCREASED [None]
  - BLOOD POTASSIUM INCREASED [None]
  - BLOOD THYROID STIMULATING HORMONE INCREASED [None]
  - BLOOD UREA INCREASED [None]
  - BLOOD URIC ACID INCREASED [None]
  - CARDIAC ARREST [None]
  - CARDIO-RESPIRATORY ARREST [None]
  - COLITIS ISCHAEMIC [None]
  - CYANOSIS [None]
  - DIARRHOEA [None]
  - DYSPNOEA [None]
  - GAMMA-GLUTAMYLTRANSFERASE INCREASED [None]
  - GLASGOW COMA SCALE ABNORMAL [None]
  - GLOMERULAR FILTRATION RATE DECREASED [None]
  - HAEMATOCRIT ABNORMAL [None]
  - HAEMOGLOBIN ABNORMAL [None]
  - INTESTINAL INFARCTION [None]
  - LOSS OF CONSCIOUSNESS [None]
  - LYMPHOCYTE COUNT INCREASED [None]
  - MEAN CELL VOLUME INCREASED [None]
  - MONOCYTE COUNT DECREASED [None]
  - NEUTROPHIL COUNT INCREASED [None]
  - PRURITUS [None]
  - RASH [None]
  - RED BLOOD CELL COUNT ABNORMAL [None]
  - THYROXINE FREE DECREASED [None]
  - TROPONIN I INCREASED [None]
  - WHITE BLOOD CELL COUNT INCREASED [None]
